FAERS Safety Report 7738409-0 (Version None)
Quarter: 2011Q3

REPORT INFORMATION
  Report Type: 
  Country: None (occurrence: None)
  Receive Date: 20110908
  Receipt Date: 20110902
  Transmission Date: 20111222
  Serious: Yes (Other)
  Sender: FDA-Public Use
  Company Number: PHHY2011US54825

PATIENT
  Sex: Female
  Weight: 130 kg

DRUGS (13)
  1. FISH OIL [Concomitant]
  2. GILENYA [Suspect]
     Dosage: UNK UKN, UNK
     Dates: start: 20110622
  3. NAPROSYN [Concomitant]
  4. WELLBUTRIN [Concomitant]
  5. VITAMIN D [Concomitant]
  6. BONIVA [Concomitant]
  7. DITROPAN [Concomitant]
  8. CALCIUM CARBONATE [Concomitant]
  9. LORAZEPAM [Concomitant]
  10. GILENYA [Suspect]
     Indication: RELAPSING-REMITTING MULTIPLE SCLEROSIS
     Dosage: 0.5 MG, QD
     Route: 048
     Dates: start: 20110617
  11. FAMPRIDINE [Concomitant]
     Indication: RELAPSING-REMITTING MULTIPLE SCLEROSIS
     Dosage: 10 MG, BID
     Route: 048
     Dates: start: 20110317
  12. FOLIC ACID [Concomitant]
  13. MULTI-VITAMINS [Concomitant]

REACTIONS (7)
  - FALL [None]
  - GAIT DISTURBANCE [None]
  - ACCIDENTAL OVERDOSE [None]
  - FEELING ABNORMAL [None]
  - ASTHENIA [None]
  - BALANCE DISORDER [None]
  - SENSATION OF HEAVINESS [None]
